FAERS Safety Report 8770711 (Version 1)
Quarter: 2012Q4

REPORT INFORMATION
  Report Type: 
  Country: US (occurrence: US)
  Receive Date: 20120906
  Receipt Date: 20120906
  Transmission Date: 20130627
  Serious: Yes (Hospitalization)
  Sender: FDA-Public Use
  Company Number: US-BAYER-2012-091453

PATIENT
  Age: 25 Year
  Sex: Female
  Weight: 58.96 kg

DRUGS (8)
  1. YASMIN [Suspect]
     Indication: ORAL CONTRACEPTION
  2. IBUPROFEN [Concomitant]
  3. OXYBUTYNIN [Concomitant]
     Dosage: 5 mg, UNK
  4. BEXTRA [Concomitant]
     Dosage: 75 mg, UNK
  5. EFFEXOR [Concomitant]
  6. DETROL LA [Concomitant]
  7. MACROBID [Concomitant]
     Indication: URINARY TRACT INFECTION
  8. DARVOCET [Concomitant]

REACTIONS (2)
  - Deep vein thrombosis [Recovered/Resolved]
  - Pulmonary embolism [Recovered/Resolved]
